FAERS Safety Report 5519207-5 (Version None)
Quarter: 2007Q4

REPORT INFORMATION
  Report Type: 
  Country: None (occurrence: None)
  Receive Date: 20071116
  Receipt Date: 20071106
  Transmission Date: 20080405
  Serious: Yes (Death)
  Sender: FDA-Public Use
  Company Number: HQWYE396411NOV04

PATIENT
  Sex: Male

DRUGS (3)
  1. CORDARONE [Suspect]
  2. AMIODARONE HCL [Suspect]
  3. PACERONE [Suspect]

REACTIONS (3)
  - PULMONARY FIBROSIS [None]
  - PULMONARY TOXICITY [None]
  - RESPIRATORY FAILURE [None]
